FAERS Safety Report 8376110-3 (Version None)
Quarter: 2012Q2

REPORT INFORMATION
  Report Type: 
  Country: None (occurrence: None)
  Receive Date: 20120522
  Receipt Date: 20120516
  Transmission Date: 20120825
  Serious: Yes (Other)
  Sender: FDA-Public Use
  Company Number: US-AMGEN-USASP2010008510

PATIENT
  Age: 53 Year
  Sex: Male
  Weight: 87.075 kg

DRUGS (4)
  1. NPLATE [Suspect]
  2. NPLATE [Suspect]
     Indication: IDIOPATHIC THROMBOCYTOPENIC PURPURA
     Dosage: 850 MUG, UNK
     Dates: start: 20091231, end: 20110804
  3. ZOCOR [Concomitant]
  4. NIACIN [Concomitant]

REACTIONS (2)
  - THERAPEUTIC RESPONSE DECREASED [None]
  - PLATELET COUNT DECREASED [None]
